FAERS Safety Report 8043210 (Version 3)
Quarter: 2012Q4

REPORT INFORMATION
  Report Type: 
  Country: US (occurrence: US)
  Receive Date: 20110719
  Receipt Date: 20121217
  Transmission Date: 20130627
  Serious: Yes (Hospitalization, Other)
  Sender: FDA-Public Use
  Company Number: US-ELI_LILLY_AND_COMPANY-US201107002810

PATIENT
  Age: 80 None
  Weight: 55.78 kg

DRUGS (6)
  1. HUMULIN REGULAR [Suspect]
     Indication: TYPE 1 DIABETES MELLITUS
     Dosage: 10 u, qd
     Route: 058
  2. LANTUS [Concomitant]
     Dosage: UNK
  3. ULTRALENTE INSULIN [Concomitant]
     Dosage: 12 u, UNK
  4. SYNTHROID [Concomitant]
     Dosage: 75 ug, qd
  5. ALPRAZOLAM [Concomitant]
     Dosage: 1 mg, bid
  6. DETROL LA [Concomitant]
     Dosage: 4 mg, qd

REACTIONS (6)
  - Coronary artery disease [Recovered/Resolved]
  - Atrioventricular block complete [Recovered/Resolved]
  - Blood glucose decreased [Recovered/Resolved]
  - Nervousness [Recovered/Resolved]
  - Feeling abnormal [Recovered/Resolved]
  - Hypoglycaemia unawareness [Recovered/Resolved]
